FAERS Safety Report 25558451 (Version 1)
Quarter: 2025Q3

REPORT INFORMATION
  Report Type: Spontaneous
  Country: US (occurrence: US)
  Receive Date: 20250715
  Receipt Date: 20250715
  Transmission Date: 20251021
  Serious: No
  Sender: NOVO NORDISK
  Company Number: US-NOVOPROD-1435160

PATIENT
  Age: 81 Year
  Sex: Female
  Weight: 136.05 kg

DRUGS (1)
  1. OZEMPIC [Suspect]
     Active Substance: SEMAGLUTIDE
     Indication: Type 2 diabetes mellitus
     Dates: start: 202409

REACTIONS (3)
  - Urinary incontinence [Not Recovered/Not Resolved]
  - Hypoacusis [Unknown]
  - Constipation [Recovered/Resolved]

NARRATIVE: CASE EVENT DATE: 20240901
